FAERS Safety Report 19034155 (Version 4)
Quarter: 2021Q2

REPORT INFORMATION
  Report Type: Spontaneous
  Country: JP (occurrence: JP)
  Receive Date: 20210319
  Receipt Date: 20210528
  Transmission Date: 20210717
  Serious: Yes (Hospitalization, Disabling, Other)
  Sender: FDA-Public Use
  Company Number: JP-ABBVIE-21K-087-3824283-00

PATIENT
  Age: 68 Year
  Sex: Male

DRUGS (8)
  1. PROPOFOL. [Concomitant]
     Active Substance: PROPOFOL
     Indication: INDUCTION OF ANAESTHESIA
     Route: 042
     Dates: start: 20210106, end: 20210106
  2. POPSCAINE [Suspect]
     Active Substance: LEVOBUPIVACAINE HYDROCHLORIDE
     Indication: ANALGESIC THERAPY
     Route: 008
     Dates: start: 20210106, end: 20210106
  3. MIDAZOLAM. [Concomitant]
     Active Substance: MIDAZOLAM
     Indication: SEDATION
     Dosage: 9:12
     Route: 042
     Dates: start: 20210106, end: 20210106
  4. SUPRANE [Concomitant]
     Active Substance: DESFLURANE
     Indication: MAINTENANCE OF ANAESTHESIA
     Dosage: 3 HOURS AND 35 MINUTES
     Route: 055
     Dates: start: 20210106, end: 20210106
  5. POPSCAINE [Suspect]
     Active Substance: LEVOBUPIVACAINE HYDROCHLORIDE
     Indication: POSTOPERATIVE ANALGESIA
     Dosage: 2 DAYS 19 HOURS 20 MINUTES
     Route: 008
     Dates: start: 20210106, end: 20210108
  6. ROCURONIUM [Concomitant]
     Active Substance: ROCURONIUM BROMIDE
     Indication: HYPOTONIA
     Dosage: 9:30?9:30
     Route: 042
     Dates: start: 20210106, end: 20210106
  7. ROCURONIUM [Concomitant]
     Active Substance: ROCURONIUM BROMIDE
     Dosage: 9:50 ?12:15
     Route: 042
     Dates: start: 20210106, end: 20210106
  8. REMIFENTANIL [Concomitant]
     Active Substance: REMIFENTANIL
     Indication: ANALGESIC THERAPY
     Dosage: 0.05?0.25 MCG/KG PER HOUR?9:25 ?13:00
     Route: 042
     Dates: start: 20210106, end: 20210106

REACTIONS (2)
  - Monoplegia [Unknown]
  - Hypoaesthesia [Unknown]

NARRATIVE: CASE EVENT DATE: 20210107
